FAERS Safety Report 10334196 (Version 1)
Quarter: 2014Q3

REPORT INFORMATION
  Report Type: Spontaneous
  Country: CN (occurrence: CN)
  Receive Date: 20140723
  Receipt Date: 20140723
  Transmission Date: 20150326
  Serious: Yes (Hospitalization)
  Sender: FDA-Public Use
  Company Number: CN-JNJFOC-20140705424

PATIENT
  Age: 1 Year
  Sex: Male
  Weight: 12 kg

DRUGS (4)
  1. TYLENOL CHILDREN^S SUSP LIQUID 100ML [Suspect]
     Active Substance: ACETAMINOPHEN
     Route: 048
  2. RADIX BUPLEURI [Concomitant]
     Indication: PYREXIA
     Route: 030
     Dates: start: 20140207, end: 20140307
  3. TYLENOL CHILDREN^S SUSP LIQUID 100ML [Suspect]
     Active Substance: ACETAMINOPHEN
     Indication: PYREXIA
     Route: 048
     Dates: start: 20140205, end: 20140312
  4. CEFACLOR. [Suspect]
     Active Substance: CEFACLOR
     Indication: UPPER RESPIRATORY TRACT INFECTION
     Route: 048
     Dates: start: 20140307, end: 20140308

REACTIONS (5)
  - Drug ineffective [Unknown]
  - Urticaria [Recovered/Resolved]
  - Aspartate aminotransferase increased [None]
  - Liver function test abnormal [Recovering/Resolving]
  - Alanine aminotransferase increased [None]

NARRATIVE: CASE EVENT DATE: 201403
